FAERS Safety Report 6577966-7 (Version None)
Quarter: 2010Q1

REPORT INFORMATION
  Report Type: 
  Country: None (occurrence: None)
  Receive Date: 20100211
  Receipt Date: 20100208
  Transmission Date: 20100710
  Serious: Yes (Other)
  Sender: FDA-Public Use
  Company Number: US-BRISTOL-MYERS SQUIBB COMPANY-14968754

PATIENT

DRUGS (1)
  1. VIDEX EC [Suspect]

REACTIONS (2)
  - HEPATIC CIRRHOSIS [None]
  - PORTAL HYPERTENSION [None]
